FAERS Safety Report 4454899-3 (Version None)
Quarter: 2004Q3

REPORT INFORMATION
  Report Type: 
  Country: None (occurrence: None)
  Receive Date: 20040824
  Receipt Date: 20040426
  Transmission Date: 20050211
  Serious: No
  Sender: FDA-Public Use
  Company Number: SU-2004-002316

PATIENT
  Age: 28 Year
  Sex: Male
  Weight: 94.3482 kg

DRUGS (1)
  1. BENICAR [Suspect]
     Indication: HYPERTENSION
     Dosage: 20 MG QD PO
     Route: 048
     Dates: start: 20040415, end: 20040421

REACTIONS (1)
  - FLUSHING [None]
